FAERS Safety Report 14661541 (Version 2)
Quarter: 2018Q1

REPORT INFORMATION
  Report Type: Report from Study
  Country: US (occurrence: US)
  Receive Date: 20180320
  Receipt Date: 20180323
  Transmission Date: 20180509
  Serious: Yes (Other)
  Sender: FDA-Public Use
  Company Number: US-PFIZER INC-2018112205

PATIENT
  Age: 38 Year
  Sex: Female

DRUGS (6)
  1. AZITHROMYCIN ANHYDROUS. [Interacting]
     Active Substance: AZITHROMYCIN ANHYDROUS
     Dosage: UNK
  2. LEVALBUTEROL /01419301/ [Concomitant]
     Active Substance: LEVALBUTEROL
     Dosage: UNK
  3. ONDANSETRON [Suspect]
     Active Substance: ONDANSETRON
     Dosage: 4 MG, SINGLE
     Route: 042
  4. TACROLIMUS. [Interacting]
     Active Substance: TACROLIMUS
     Dosage: UNK
  5. PROCHLORPERAZINE. [Interacting]
     Active Substance: PROCHLORPERAZINE
     Dosage: UNK
  6. TRIMETHOPRIM SULFAMETHOXAZOLE [Concomitant]
     Active Substance: SULFAMETHOXAZOLE\TRIMETHOPRIM
     Dosage: UNK

REACTIONS (2)
  - Electrocardiogram QT prolonged [Unknown]
  - Drug interaction [Unknown]
